FAERS Safety Report 5120077-8 (Version None)
Quarter: 2006Q3

REPORT INFORMATION
  Report Type: 
  Country: None (occurrence: None)
  Receive Date: 20060928
  Receipt Date: 20060915
  Transmission Date: 20061208
  Serious: Yes (Death, Life-Threatening, Hospitalization)
  Sender: FDA-Public Use
  Company Number: 229992

PATIENT
  Age: 69 Year
  Sex: Female

DRUGS (4)
  1. MABTHERA (RITUXIMAB) CONC FOR SOLUTION FOR INFUSION [Suspect]
     Indication: LYMPHOMA
     Dosage: 1575 MG/M2, INTRAVENOUS
     Route: 042
     Dates: start: 20040913
  2. MABTHERA (RITUXIMAB) CONC FOR SOLUTION FOR INFUSION [Suspect]
  3. CYCLOPHOSPHAMIDE [Suspect]
     Indication: LYMPHOMA
     Dosage: 1000 MG/M2, Q28D, INTRAVENOUS
     Route: 042
     Dates: start: 20040913
  4. FLUDARABINE PHOSPHATE [Suspect]
     Indication: LYMPHOMA
     Dosage: 175 MG/M2, Q28, INTRAVENOUS
     Route: 042
     Dates: start: 20040913

REACTIONS (9)
  - ACUTE MYELOID LEUKAEMIA [None]
  - ANAEMIA [None]
  - BIOPSY BONE MARROW ABNORMAL [None]
  - BLAST CELLS PRESENT [None]
  - BLOOD LACTATE DEHYDROGENASE INCREASED [None]
  - LEUKOCYTOSIS [None]
  - MONOCYTE PERCENTAGE INCREASED [None]
  - RESPIRATORY FAILURE [None]
  - THROMBOCYTOPENIA [None]
